FAERS Safety Report 4962760-0 (Version None)
Quarter: 2006Q1

REPORT INFORMATION
  Report Type: 
  Country: None (occurrence: None)
  Receive Date: 20060201
  Receipt Date: 20060201
  Transmission Date: 20060701
  Serious: No
  Sender: FDA-Public Use
  Company Number: 2005PV004172

PATIENT
  Age: 59 Year
  Sex: Female
  Weight: 95.2554 kg

DRUGS (13)
  1. BYETTA [Suspect]
     Indication: DIABETES MELLITUS NON-INSULIN-DEPENDENT
     Dosage: SEE IMAGE
     Route: 058
     Dates: start: 20051001, end: 20051104
  2. BYETTA [Suspect]
     Indication: DIABETES MELLITUS NON-INSULIN-DEPENDENT
     Dosage: SEE IMAGE
     Route: 058
     Dates: start: 20051104
  3. GLYBURIDE [Concomitant]
  4. FORTAMET [Concomitant]
  5. GLUCOVANCE [Concomitant]
  6. ACCUPRIL [Concomitant]
  7. TAGAMET [Concomitant]
  8. LASIX [Concomitant]
  9. BLOOD PRESSURE MEDICATIONS [Concomitant]
  10. POTASSIUM [Concomitant]
  11. INSULIN [Concomitant]
  12. ACOPHEX [Concomitant]
  13. NEXIUM [Concomitant]

REACTIONS (3)
  - GASTROOESOPHAGEAL REFLUX DISEASE [None]
  - INJECTION SITE BRUISING [None]
  - PERIORBITAL OEDEMA [None]
